FAERS Safety Report 6945988-X (Version None)
Quarter: 2010Q3

REPORT INFORMATION
  Report Type: 
  Country: None (occurrence: None)
  Receive Date: 20100827
  Receipt Date: 20100819
  Transmission Date: 20110219
  Serious: Yes (Hospitalization, Other)
  Sender: FDA-Public Use
  Company Number: US-AMGEN-QUU427602

PATIENT
  Sex: Male
  Weight: 68.2 kg

DRUGS (6)
  1. NPLATE [Suspect]
     Indication: IDIOPATHIC THROMBOCYTOPENIC PURPURA
  2. DIGOXIN [Concomitant]
  3. BUMETANIDE [Concomitant]
  4. POTASSIUM [Concomitant]
  5. LOPRESSOR [Concomitant]
  6. COZAAR [Concomitant]

REACTIONS (5)
  - ANTI-PLATELET ANTIBODY [None]
  - COUGH [None]
  - JUGULAR VEIN DISTENSION [None]
  - OEDEMA PERIPHERAL [None]
  - THERAPEUTIC RESPONSE DECREASED [None]
